FAERS Safety Report 8872576 (Version 2)
Quarter: 2012Q4

REPORT INFORMATION
  Report Type: 
  Country: FR (occurrence: FR)
  Receive Date: 20121030
  Receipt Date: 20121218
  Transmission Date: 20130627
  Serious: Yes (Hospitalization)
  Sender: FDA-Public Use
  Company Number: FR-B.I. PHARMACEUTICALS,INC./RIDGEFIELD-2012-FF-01533FF

PATIENT
  Age: 95 Year
  Sex: Female
  Weight: 56 kg

DRUGS (13)
  1. PRADAXA [Suspect]
     Indication: ATRIAL FIBRILLATION
     Dosage: 220 mg
     Route: 048
     Dates: start: 20121015, end: 20121017
  2. PROCORALAN [Concomitant]
     Indication: CORONARY ARTERY DISEASE
     Dosage: 2.5 mg
     Route: 048
  3. TRIATEC [Concomitant]
     Route: 048
  4. CARDENSIEL [Concomitant]
     Route: 048
  5. LASILIX [Concomitant]
     Dosage: 80 mg
     Route: 048
  6. LODALES [Concomitant]
  7. ZANIDIP [Concomitant]
  8. DIFFU K [Concomitant]
  9. LOPRIL [Concomitant]
     Dosage: 25 mg
  10. OROCAL [Concomitant]
  11. DAFALGAN [Concomitant]
  12. PROCTOLOG [Concomitant]
  13. VITA BACK [Concomitant]

REACTIONS (9)
  - Rhabdomyolysis [Recovered/Resolved]
  - Fatigue [Recovered/Resolved]
  - Stupor [Recovered/Resolved]
  - Delirium [Recovered/Resolved]
  - Myalgia [Recovered/Resolved]
  - Oedema [Recovered/Resolved]
  - Renal failure acute [Recovered/Resolved]
  - Blood creatine phosphokinase increased [Recovered/Resolved]
  - Muscle rigidity [Recovered/Resolved]
